FAERS Safety Report 23753200 (Version 1)
Quarter: 2024Q2

REPORT INFORMATION
  Report Type: Spontaneous
  Country: CN (occurrence: CN)
  Receive Date: 20240417
  Receipt Date: 20240417
  Transmission Date: 20240716
  Serious: Yes (Hospitalization)
  Sender: FDA-Public Use
  Company Number: CN-NAPPMUNDI-GBR-2024-0115787

PATIENT
  Age: 62 Year
  Sex: Female
  Weight: 42 kg

DRUGS (2)
  1. OXYCONTIN [Suspect]
     Active Substance: OXYCODONE HYDROCHLORIDE
     Indication: Pain
     Dosage: 40 MILLIGRAM, TID
     Route: 048
     Dates: start: 20240309, end: 202403
  2. OXYCONTIN [Suspect]
     Active Substance: OXYCODONE HYDROCHLORIDE
     Dosage: 160 MILLIGRAM, TID
     Route: 048
     Dates: start: 202403, end: 20240324

REACTIONS (4)
  - Somnolence [Unknown]
  - Hypotension [Unknown]
  - Neuropsychological symptoms [Unknown]
  - Inappropriate schedule of product administration [Unknown]

NARRATIVE: CASE EVENT DATE: 20240309
